FAERS Safety Report 24237789 (Version 4)
Quarter: 2025Q1

REPORT INFORMATION
  Report Type: Spontaneous
  Country: IL (occurrence: IL)
  Receive Date: 20240822
  Receipt Date: 20250109
  Transmission Date: 20250409
  Serious: No
  Sender: PFIZER
  Company Number: IL-PFIZER INC-PV202400107630

PATIENT
  Age: 7 Year
  Sex: Male

DRUGS (1)
  1. NGENLA [Suspect]
     Active Substance: SOMATROGON-GHLA
     Dosage: 12 MG, WEEKLY (DIVIDED TO TWO 6 MG INJECTIONS ON THE SAME DAY)
     Route: 058
     Dates: start: 20240728

REACTIONS (4)
  - Injection site mass [Unknown]
  - Injection site pain [Not Recovered/Not Resolved]
  - Lack of injection site rotation [Unknown]
  - Anxiety [Unknown]
